FAERS Safety Report 12612068 (Version 2)
Quarter: 2016Q3

REPORT INFORMATION
  Report Type: Report from Study
  Country: BR (occurrence: BR)
  Receive Date: 20160801
  Receipt Date: 20160929
  Transmission Date: 20161109
  Serious: Yes (Hospitalization, Other)
  Sender: FDA-Public Use
  Company Number: BR-JNJFOC-20160528921

PATIENT
  Age: 42 Year
  Sex: Male

DRUGS (3)
  1. REMICADE [Suspect]
     Active Substance: INFLIXIMAB
     Indication: CROHN^S DISEASE
     Route: 042
     Dates: start: 20160527
  2. REMICADE [Suspect]
     Active Substance: INFLIXIMAB
     Indication: CROHN^S DISEASE
     Route: 042
     Dates: start: 20100504
  3. REMICADE [Suspect]
     Active Substance: INFLIXIMAB
     Indication: CROHN^S DISEASE
     Route: 042
     Dates: start: 20160722

REACTIONS (10)
  - Gastrointestinal tube insertion [Recovered/Resolved]
  - Intestinal stenosis [Unknown]
  - Pulmonary oedema [Recovering/Resolving]
  - Pain [Recovering/Resolving]
  - Anal infection [Unknown]
  - Pneumonia [Unknown]
  - Gait disturbance [Recovering/Resolving]
  - Fistula [Recovering/Resolving]
  - Surgery [Unknown]
  - Rash pustular [Recovering/Resolving]

NARRATIVE: CASE EVENT DATE: 2016
